FAERS Safety Report 23164611 (Version 1)
Quarter: 2023Q4

REPORT INFORMATION
  Report Type: Spontaneous
  Country: GB (occurrence: GB)
  Receive Date: 20231109
  Receipt Date: 20231109
  Transmission Date: 20240109
  Serious: Yes (Other)
  Sender: FDA-Public Use
  Company Number: None

PATIENT
  Age: 78 Year
  Sex: Female
  Weight: 62 kg

DRUGS (2)
  1. ROSUVASTATIN [Suspect]
     Active Substance: ROSUVASTATIN
     Indication: Product used for unknown indication
     Dosage: UNKNOWN
     Route: 065
  2. AMLODIPINE [Concomitant]
     Active Substance: AMLODIPINE BESYLATE
     Indication: Hypertension
     Dosage: UNKNOWN
     Route: 065
     Dates: start: 20230728

REACTIONS (11)
  - Headache [Unknown]
  - Abdominal pain upper [Unknown]
  - Illness [Unknown]
  - Myalgia [Unknown]
  - Dizziness [Unknown]
  - Depression [Unknown]
  - Oedema [Unknown]
  - Rash vesicular [Recovering/Resolving]
  - Rash pruritic [Recovering/Resolving]
  - Rash [Recovering/Resolving]
  - Rash erythematous [Recovering/Resolving]
